FAERS Safety Report 5304388-9 (Version None)
Quarter: 2007Q2

REPORT INFORMATION
  Report Type: 
  Country: None (occurrence: None)
  Receive Date: 20070423
  Receipt Date: 20070410
  Transmission Date: 20071010
  Serious: Yes (Life-Threatening, Disabling)
  Sender: FDA-Public Use
  Company Number: CH-AVENTIS-200713465GDDC

PATIENT
  Age: 37 Year
  Sex: Male

DRUGS (2)
  1. ARAVA [Suspect]
     Route: 048
     Dates: start: 20050907, end: 20070315
  2. DICLOFENAC [Concomitant]
     Indication: ARTHRITIS
     Dosage: DOSE: 100-150
     Route: 048
     Dates: start: 20050101

REACTIONS (1)
  - SARCOMA [None]
